FAERS Safety Report 5511655-2 (Version None)
Quarter: 2007Q4

REPORT INFORMATION
  Report Type: 
  Country: None (occurrence: None)
  Receive Date: 20071109
  Receipt Date: 20071026
  Transmission Date: 20080405
  Serious: Yes (Death)
  Sender: FDA-Public Use
  Company Number: GB-RANBAXY-2007RR-11117

PATIENT

DRUGS (9)
  1. CIPROFLOXACIN [Suspect]
     Dosage: 250 MG, BID
  2. CLARITHROMYCIN 500MG TABLETS [Suspect]
     Dosage: 250 MG, BID
  3. CARBOPLATIN [Suspect]
     Indication: SMALL CELL LUNG CANCER STAGE UNSPECIFIED
     Dosage: UNK
     Route: 042
     Dates: start: 20060125, end: 20060125
  4. ETOPOSIDE [Suspect]
     Indication: SMALL CELL LUNG CANCER STAGE UNSPECIFIED
     Dosage: UNK
     Route: 042
     Dates: start: 20060125, end: 20060127
  5. BISOPROLOL 10MG TABLETS [Concomitant]
     Route: 048
  6. CO-AMOXICLAV 125/31 ORAL SUSPENSION SUGAR-FREE [Concomitant]
     Route: 065
  7. DEXAMETHASONE [Concomitant]
     Route: 065
  8. DOMPERIDONE 10MG TABLETS [Concomitant]
     Route: 065
  9. OMEPRAZOLE [Concomitant]
     Route: 048

REACTIONS (1)
  - NEUTROPENIC SEPSIS [None]
